FAERS Safety Report 25997652 (Version 1)
Quarter: 2025Q4

REPORT INFORMATION
  Report Type: Spontaneous
  Country: US (occurrence: US)
  Receive Date: 20251104
  Receipt Date: 20251104
  Transmission Date: 20260118
  Serious: Yes (Hospitalization)
  Sender: PHARMOBEDIENT CONSULTING, LLC
  Company Number: US-Pharmobedient-000415

PATIENT
  Age: 15 Year
  Sex: Male

DRUGS (5)
  1. NIFEDIPINE [Suspect]
     Active Substance: NIFEDIPINE
     Indication: Hypertension
     Dates: start: 202206
  2. TACROLIMUS [Concomitant]
     Active Substance: TACROLIMUS
     Indication: Immunosuppression
  3. PREDNISONE [Concomitant]
     Active Substance: PREDNISONE
     Indication: Immunosuppression
  4. MYCOPHENOLATE MOFETIL [Concomitant]
     Active Substance: MYCOPHENOLATE MOFETIL
     Indication: Immunosuppression
     Dosage: 3 TABLETS (540 MG) ORALLY EVERY MORNING, TWO TABLETS (360 MG) EVERY EVENING
     Route: 048
  5. THYMOGLOBULIN [Concomitant]
     Active Substance: LAPINE T-LYMPHOCYTE IMMUNE GLOBULIN
     Indication: Immunosuppression
     Dosage: FOUR DOSES
     Route: 042

REACTIONS (3)
  - Gingival hypertrophy [Recovered/Resolved]
  - Weight decreased [Recovered/Resolved]
  - Sleep-related breathing disorder [Recovered/Resolved]

NARRATIVE: CASE EVENT DATE: 20230101
